FAERS Safety Report 15338804 (Version 1)
Quarter: 2018Q3

REPORT INFORMATION
  Report Type: Spontaneous
  Country: US (occurrence: US)
  Receive Date: 20180831
  Receipt Date: 20180831
  Transmission Date: 20181010
  Serious: No
  Sender: FDA-Public Use
  Company Number: US-009507513-1808USA005227

PATIENT
  Sex: Male

DRUGS (1)
  1. SINEMET [Suspect]
     Active Substance: CARBIDOPA\LEVODOPA
     Dosage: 1 TABLET, 6 TIMES A DAY
     Route: 048

REACTIONS (3)
  - No adverse event [Unknown]
  - Drug dose omission [Unknown]
  - Product availability issue [Unknown]
